FAERS Safety Report 4352802-8 (Version None)
Quarter: 2004Q2

REPORT INFORMATION
  Report Type: 
  Country: None (occurrence: None)
  Receive Date: 20040429
  Receipt Date: 20040413
  Transmission Date: 20050107
  Serious: Yes (Hospitalization)
  Sender: FDA-Public Use
  Company Number: 195972

PATIENT
  Age: 36 Year
  Sex: Female
  Weight: 92.5338 kg

DRUGS (2)
  1. AVONEX [Suspect]
     Indication: MULTIPLE SCLEROSIS
     Dosage: 30 MCG QW IM
     Route: 030
     Dates: start: 19960801, end: 20040101
  2. AVONEX [Suspect]
     Indication: MULTIPLE SCLEROSIS
     Dosage: 30 MCG QW IM
     Route: 030
     Dates: start: 20040101

REACTIONS (26)
  - ANAEMIA [None]
  - APPENDICITIS [None]
  - BALANCE DISORDER [None]
  - BLOOD CHOLESTEROL INCREASED [None]
  - BLOOD IRON DECREASED [None]
  - CHOLELITHIASIS [None]
  - CONSTIPATION [None]
  - FALL [None]
  - GASTROOESOPHAGEAL REFLUX DISEASE [None]
  - HAEMATOMA [None]
  - HUMERUS FRACTURE [None]
  - HYPOKALAEMIA [None]
  - IRRITABLE BOWEL SYNDROME [None]
  - JOINT DISLOCATION [None]
  - LIPOMA [None]
  - LOWER GASTROINTESTINAL HAEMORRHAGE [None]
  - MULTIPLE SCLEROSIS [None]
  - NEURALGIA [None]
  - OEDEMA [None]
  - PAIN [None]
  - PNEUMONIA [None]
  - PNEUMOTHORAX [None]
  - RIB FRACTURE [None]
  - SERUM SEROTONIN DECREASED [None]
  - SUPRAVENTRICULAR TACHYCARDIA [None]
  - UTERINE INVERSION [None]
